FAERS Safety Report 10953468 (Version 2)
Quarter: 2015Q2

REPORT INFORMATION
  Report Type: Spontaneous
  Country: PL (occurrence: None)
  Receive Date: 20150323
  Receipt Date: 20150413
  Transmission Date: 20150821
  Serious: Yes (Death, Life-Threatening, Hospitalization, Disabling, Other)
  Sender: FDA-Public Use
  Company Number: PL-MDCO-15-00139

PATIENT
  Age: 58 Year
  Sex: Male

DRUGS (3)
  1. TICAGRELOR (TICAGRELOR) [Suspect]
     Active Substance: TICAGRELOR
     Indication: THROMBOSIS PROPHYLAXIS
     Route: 048
     Dates: start: 20150220
  2. ANGIOX (BIVALIRUDIN MARKETED) (BIVALIRUDIN) (BIVALIRUDIN) [Suspect]
     Active Substance: BIVALIRUDIN
     Indication: PERCUTANEOUS CORONARY INTERVENTION
     Route: 040
     Dates: start: 20150220, end: 20150220
  3. ACETYLSALICYCLIC ACID (ACETYLSALICYCLIC ACID) [Suspect]
     Active Substance: ASPIRIN
     Indication: THROMBOSIS PROPHYLAXIS
     Route: 048
     Dates: start: 20150220

REACTIONS (5)
  - Thrombosis in device [None]
  - Ventricle rupture [None]
  - Cardiac arrest [None]
  - Blood creatinine increased [None]
  - Myocardial rupture [None]

NARRATIVE: CASE EVENT DATE: 20150221
